FAERS Safety Report 23090382 (Version 1)
Quarter: 2023Q4

REPORT INFORMATION
  Report Type: Spontaneous
  Country: US (occurrence: US)
  Receive Date: 20231020
  Receipt Date: 20231020
  Transmission Date: 20240109
  Serious: Yes (Hospitalization, Other)
  Sender: FDA-Public Use
  Company Number: US-FreseniusKabi-FK202316623

PATIENT
  Age: 39 Year
  Sex: Female

DRUGS (2)
  1. HEPARIN [Suspect]
     Active Substance: HEPARIN SODIUM
     Indication: Anticoagulant therapy
     Dosage: FOR CHA2DS2VASC SCORE
  2. AMIODARONE [Concomitant]
     Active Substance: AMIODARONE
     Indication: Anticoagulant therapy
     Dosage: FOR CHA2DS2VASC SCORE

REACTIONS (2)
  - Pericardial haemorrhage [Recovering/Resolving]
  - Cardiac tamponade [Recovering/Resolving]
